FAERS Safety Report 16766286 (Version 1)
Quarter: 2019Q3

REPORT INFORMATION
  Report Type: Spontaneous
  Country: US (occurrence: US)
  Receive Date: 20190903
  Receipt Date: 20190903
  Transmission Date: 20191005
  Serious: Yes (Hospitalization, Other)
  Sender: FDA-Public Use
  Company Number: US-PFIZER INC-2019372556

PATIENT
  Age: 44 Year
  Sex: Female

DRUGS (1)
  1. XELJANZ XR [Suspect]
     Active Substance: TOFACITINIB CITRATE
     Indication: RHEUMATOID ARTHRITIS
     Dosage: 11 MG, DAILY
     Route: 048
     Dates: start: 20190802

REACTIONS (15)
  - Small intestinal obstruction [Unknown]
  - Dry mouth [Unknown]
  - Chest pain [Unknown]
  - Muscle spasms [Unknown]
  - Menorrhagia [Unknown]
  - Fungal infection [Unknown]
  - Increased appetite [Unknown]
  - Dyspepsia [Unknown]
  - Vulvovaginal dryness [Unknown]
  - Thirst [Unknown]
  - Oral disorder [Unknown]
  - Oral pain [Unknown]
  - Pollakiuria [Unknown]
  - Wrong technique in product usage process [Unknown]
  - Off label use [Unknown]

NARRATIVE: CASE EVENT DATE: 201908
